FAERS Safety Report 21018203 (Version 1)
Quarter: 2022Q2

REPORT INFORMATION
  Report Type: Spontaneous
  Country: US (occurrence: None)
  Receive Date: 20220628
  Receipt Date: 20220628
  Transmission Date: 20220721
  Serious: Yes (Life-Threatening, Disabling, Other)
  Sender: FDA-Public Use
  Company Number: None

PATIENT
  Age: 63 Year
  Sex: Female
  Weight: 51.3 kg

DRUGS (1)
  1. MAGNESIUM CITRATE SALINE LAXATIVE [Suspect]
     Active Substance: MAGNESIUM CITRATE
     Indication: Constipation
     Dosage: OTHER QUANTITY : 1 1;?OTHER FREQUENCY : 1;?
     Route: 048
     Dates: start: 20220518, end: 20220519

REACTIONS (2)
  - Faeces discoloured [None]
  - Diarrhoea [None]

NARRATIVE: CASE EVENT DATE: 20220518
